FAERS Safety Report 11328608 (Version 1)
Quarter: 2015Q3

REPORT INFORMATION
  Report Type: Report from Study
  Country: FR (occurrence: FR)
  Receive Date: 20150731
  Receipt Date: 20150731
  Transmission Date: 20151125
  Serious: Yes (Other)
  Sender: FDA-Public Use
  Company Number: FR-ABBVIE-15K-056-1434433-00

PATIENT
  Age: 80 Year
  Sex: Male

DRUGS (1)
  1. HUMIRA [Suspect]
     Active Substance: ADALIMUMAB
     Indication: ANKYLOSING SPONDYLITIS
     Route: 065
     Dates: start: 20120101, end: 20150401

REACTIONS (5)
  - Hip arthroplasty [Unknown]
  - Impaired healing [Unknown]
  - Hip arthroplasty [Unknown]
  - Adverse drug reaction [Unknown]
  - Embolism [Unknown]

NARRATIVE: CASE EVENT DATE: 2015
